FAERS Safety Report 20199318 (Version 2)
Quarter: 2022Q1

REPORT INFORMATION
  Report Type: Spontaneous
  Country: US (occurrence: US)
  Receive Date: 20211217
  Receipt Date: 20220111
  Transmission Date: 20220423
  Serious: Yes (Other)
  Sender: FDA-Public Use
  Company Number: US-PFIZER INC-202101748199

PATIENT
  Age: 66 Year
  Sex: Female

DRUGS (2)
  1. IBRANCE [Suspect]
     Active Substance: PALBOCICLIB
     Indication: Breast cancer
     Dosage: 100 MG
     Dates: start: 20211018
  2. IBRANCE [Suspect]
     Active Substance: PALBOCICLIB
     Dosage: 100 MG, 1X/DAY (TAKE 1 TAB PO QD)
     Route: 048
     Dates: start: 20211108

REACTIONS (6)
  - Neutropenia [Unknown]
  - Fatigue [Unknown]
  - White blood cell count abnormal [Recovered/Resolved]
  - Dry skin [Unknown]
  - Alopecia [Unknown]
  - Decreased appetite [Unknown]
